FAERS Safety Report 10758012 (Version 1)
Quarter: 2015Q1

REPORT INFORMATION
  Report Type: Spontaneous
  Country: US (occurrence: US)
  Receive Date: 20150203
  Receipt Date: 20150203
  Transmission Date: 20150721
  Serious: No
  Sender: FDA-Public Use
  Company Number: US-TEVA-514648USA

PATIENT
  Sex: Male

DRUGS (1)
  1. MIRTAZAPINE. [Suspect]
     Active Substance: MIRTAZAPINE
     Route: 065

REACTIONS (3)
  - Arthralgia [Unknown]
  - Pain in extremity [Unknown]
  - Bone pain [Unknown]
